FAERS Safety Report 6183120-3 (Version None)
Quarter: 2009Q2

REPORT INFORMATION
  Report Type: 
  Country: None (occurrence: None)
  Receive Date: 20090507
  Receipt Date: 20090427
  Transmission Date: 20091009
  Serious: Yes (Hospitalization, Other)
  Sender: FDA-Public Use
  Company Number: PHHY2009DK14507

PATIENT
  Age: 28 Year
  Sex: Female

DRUGS (5)
  1. DICLOFENAC [Suspect]
     Dosage: 50 MG, TID
     Route: 065
  2. ATOSIBAN [Concomitant]
     Indication: PREMATURE LABOUR
  3. BETAMETHASONE [Concomitant]
  4. AMPICILLIN [Concomitant]
  5. METRONIDAZOLE [Concomitant]

REACTIONS (3)
  - CAESAREAN SECTION [None]
  - DRUG EXPOSURE DURING PREGNANCY [None]
  - PREMATURE LABOUR [None]
